FAERS Safety Report 21822167 (Version 1)
Quarter: 2023Q1

REPORT INFORMATION
  Report Type: Report from Study
  Country: US (occurrence: US)
  Receive Date: 20230105
  Receipt Date: 20230105
  Transmission Date: 20230417
  Serious: No
  Sender: FDA-Public Use
  Company Number: US-ABBVIE-4229026

PATIENT
  Sex: Male

DRUGS (1)
  1. HUMIRA [Suspect]
     Active Substance: ADALIMUMAB
     Indication: Non-infectious endophthalmitis
     Dosage: CITRATE FREE
     Route: 058

REACTIONS (2)
  - Visual impairment [Unknown]
  - Drug ineffective [Unknown]
